FAERS Safety Report 18177650 (Version 1)
Quarter: 2020Q3

REPORT INFORMATION
  Report Type: Spontaneous
  Country: RO (occurrence: RO)
  Receive Date: 20200820
  Receipt Date: 20200820
  Transmission Date: 20201103
  Serious: Yes (Hospitalization)
  Sender: FDA-Public Use
  Company Number: RO-PFM-2020-17202

PATIENT

DRUGS (5)
  1. DIUREX (AMILORIDE\HYDROCHLOROTHIAZIDE) [Suspect]
     Active Substance: AMILORIDE HYDROCHLORIDE\HYDROCHLOROTHIAZIDE
     Indication: PRODUCT USED FOR UNKNOWN INDICATION
     Dosage: 1 DF, 2X PER DAY
     Route: 048
     Dates: start: 2018
  2. NORMIX [Suspect]
     Active Substance: RIFAXIMIN
     Indication: PRODUCT USED FOR UNKNOWN INDICATION
     Dosage: 6 DF, PER DAY
     Route: 048
     Dates: start: 2018
  3. HEPATOPROTECTIVE DRUGS [Suspect]
     Active Substance: UNSPECIFIED INGREDIENT
     Indication: PRODUCT USED FOR UNKNOWN INDICATION
     Dosage: UNK
     Dates: start: 2018
  4. EMANERA [Suspect]
     Active Substance: ESOMEPRAZOLE MAGNESIUM
     Indication: PRODUCT USED FOR UNKNOWN INDICATION
     Dosage: 40 MG, PER DAY
     Route: 048
     Dates: start: 2018
  5. PROPRANOLOL [Suspect]
     Active Substance: PROPRANOLOL HYDROCHLORIDE
     Indication: PRODUCT USED FOR UNKNOWN INDICATION
     Dosage: 40 MG, PER DAY
     Route: 048
     Dates: start: 2018

REACTIONS (7)
  - Abdominal distension [Unknown]
  - Off label use [Unknown]
  - Oedema peripheral [Unknown]
  - Product use issue [Unknown]
  - Jaundice [Unknown]
  - General physical health deterioration [Unknown]
  - Agitation [Unknown]

NARRATIVE: CASE EVENT DATE: 201910
